FAERS Safety Report 15555274 (Version 4)
Quarter: 2018Q4

REPORT INFORMATION
  Report Type: Spontaneous
  Country: US (occurrence: US)
  Receive Date: 20181026
  Receipt Date: 20181206
  Transmission Date: 20190205
  Serious: No
  Sender: FDA-Public Use
  Company Number: US-TEVA-2018-US-967140

PATIENT
  Age: 30 Year
  Sex: Male

DRUGS (3)
  1. CLONAZEPAM TEVA ODT [Suspect]
     Active Substance: CLONAZEPAM
     Indication: ANXIETY
     Dosage: 2 MILLIGRAM DAILY; ORALLY DISINTEGRATING TABLETS
     Route: 065
     Dates: start: 201805
  2. CLONAZEPAM TEVA ODT [Suspect]
     Active Substance: CLONAZEPAM
     Dosage: 2 MILLIGRAM DAILY;
  3. CLONAZEPAM TEVA ODT [Suspect]
     Active Substance: CLONAZEPAM
     Indication: PANIC DISORDER
     Route: 065
     Dates: start: 20181010

REACTIONS (2)
  - Drug ineffective [Unknown]
  - Fatigue [Not Recovered/Not Resolved]
